FAERS Safety Report 16673277 (Version 1)
Quarter: 2019Q3

REPORT INFORMATION
  Report Type: Spontaneous
  Country: US (occurrence: US)
  Receive Date: 20190806
  Receipt Date: 20190806
  Transmission Date: 20191004
  Serious: No
  Sender: FDA-Public Use
  Company Number: US-PFIZER INC-2019333706

PATIENT
  Age: 64 Year
  Sex: Female
  Weight: 72.57 kg

DRUGS (9)
  1. VERAPAMIL [Concomitant]
     Active Substance: VERAPAMIL HYDROCHLORIDE
     Indication: HYPERTENSION
     Dosage: 120 MG, UNK(TAKES 1/2 DAILY)
  2. ACYCLOVIR [ACICLOVIR] [Concomitant]
     Active Substance: ACYCLOVIR
     Indication: HERPES VIRUS INFECTION
     Dosage: 400 MG, DAILY
  3. GABAPENTIN. [Suspect]
     Active Substance: GABAPENTIN
     Indication: PAIN MANAGEMENT
     Dosage: 300 MG, (300MG BY MOUTH DAILY FOR 3 DAYS THEN 1 TWICE DAILY FOR 3 DAYS THEN 1 THREE TIMES DAILY)
     Route: 048
     Dates: start: 20190725, end: 20190726
  4. SERAX [SERRAPEPTASE] [Concomitant]
     Indication: NERVE INJURY
     Dosage: 15 MG, 3X/DAY
  5. ASPIRIN [ACETYLSALICYLIC ACID] [Concomitant]
     Active Substance: ASPIRIN
     Indication: HYPERTENSION
     Dosage: 81 MG, DAILY
  6. LASIX [Concomitant]
     Active Substance: FUROSEMIDE
     Indication: SWELLING
     Dosage: 40 MG, AS NEEDED
  7. ZYRTEC [Concomitant]
     Active Substance: CETIRIZINE HYDROCHLORIDE
     Indication: SINUS DISORDER
     Dosage: 10 MG, DAILY
  8. MEDROL [Concomitant]
     Active Substance: METHYLPREDNISOLONE
     Indication: RESPIRATORY DISORDER
     Dosage: 4 MG, UNK(4MG DOSE PACK)
     Dates: start: 201901
  9. TYLENOL [Concomitant]
     Active Substance: ACETAMINOPHEN
     Indication: PAIN
     Dosage: 500 MG, EVERY 6 HOURS
     Dates: start: 201901

REACTIONS (6)
  - Dysarthria [Recovered/Resolved]
  - Product use in unapproved indication [Unknown]
  - Off label use [Unknown]
  - Confusional state [Not Recovered/Not Resolved]
  - Fatigue [Not Recovered/Not Resolved]
  - Dizziness [Not Recovered/Not Resolved]

NARRATIVE: CASE EVENT DATE: 20190725
